FAERS Safety Report 13148832 (Version 3)
Quarter: 2017Q2

REPORT INFORMATION
  Report Type: Spontaneous
  Country: GR (occurrence: GR)
  Receive Date: 20170125
  Receipt Date: 20170412
  Transmission Date: 20170830
  Serious: Yes (Other)
  Sender: FDA-Public Use
  Company Number: PHHY2017GR008193

PATIENT
  Age: 45 Year
  Sex: Female

DRUGS (1)
  1. SIGNIFOR [Suspect]
     Active Substance: PASIREOTIDE
     Indication: CUSHING^S SYNDROME
     Dosage: UNK
     Route: 058
     Dates: start: 20140410, end: 201701

REACTIONS (5)
  - Polydipsia [Recovered/Resolved]
  - Glycosylated haemoglobin increased [Recovered/Resolved]
  - Ketoacidosis [Recovered/Resolved]
  - Polyuria [Recovered/Resolved]
  - Hyperglycaemia [Unknown]

NARRATIVE: CASE EVENT DATE: 201405
